FAERS Safety Report 9249047 (Version 1)
Quarter: 2013Q1

REPORT INFORMATION
  Report Type: Spontaneous
  Country: US (occurrence: None)
  Receive Date: 20130305
  Receipt Date: 20130305
  Transmission Date: 20140127
  Serious: Yes (Other)
  Sender: FDA-Public Use
  Company Number: 163-21880-12061852

PATIENT
  Age: 80 Year
  Sex: Female
  Weight: 52.62 kg

DRUGS (15)
  1. REVLIMID [Suspect]
     Indication: PLASMA CELL MYELOMA
     Dosage: 10MG, QD X 21D, PO
     Route: 048
     Dates: start: 20110319, end: 201206
  2. PRILOSEC [Concomitant]
  3. LORTAB (VICODIN) [Concomitant]
  4. MIRAPREX (PRAMIPEXOLE DIHYDROCHLORIDE) [Concomitant]
  5. NORVASC (AMLODIPINE BESILATE) [Concomitant]
  6. CALCIUM (CALCIUM) [Concomitant]
  7. FISH OIL (FISH OIL) [Concomitant]
  8. SUCRAFATE (SUCRALFATE) [Concomitant]
  9. REQUIP (ROPINIROLE HYDROCHLORIDE) [Concomitant]
  10. DEXAMETHASONE (DEXAMETHASONE) [Concomitant]
  11. POTASSIUM (POTASSIUM) [Concomitant]
  12. ATIVAN (LORAZEPAM) [Concomitant]
  13. HYDROXYZINE (HYDROXYZINE) [Concomitant]
  14. FUROSEMIDE (FUROSEMIDE) [Concomitant]
  15. DURICEF (CEFADROXIL) [Concomitant]

REACTIONS (2)
  - Platelet count decreased [None]
  - Protein total increased [None]
